FAERS Safety Report 4906166-9 (Version None)
Quarter: 2006Q1

REPORT INFORMATION
  Report Type: 
  Country: None (occurrence: None)
  Receive Date: 20060207
  Receipt Date: 20060126
  Transmission Date: 20060701
  Serious: Yes (Hospitalization)
  Sender: FDA-Public Use
  Company Number: 2006014170

PATIENT
  Age: 60 Year
  Sex: Male

DRUGS (4)
  1. SOLU-MEDROL [Suspect]
     Indication: LYMPHOMA
     Dosage: 250 MG (250 MG, 1 IN 1 D) INTRAVENOUS
     Route: 042
     Dates: start: 20051122
  2. CISPLATIN [Suspect]
     Indication: LYMPHOMA
     Dosage: 41 MG (41 MF, 1 IN 1D), INTRAVENOUS
     Route: 042
     Dates: start: 20051122, end: 20051125
  3. VEPESID [Suspect]
     Indication: LYMPHOMA
     Dosage: 67 MG (67 MG, 1 IN 1 D), INTRAVENOUS
     Route: 042
     Dates: start: 20051122
  4. CYCLOCIDE  (CYTARABINE) [Suspect]
     Indication: LYMPHOMA
     Dosage: 3350 MG (3350 MG, 1 IN 1D) INTRAVENOUS
     Route: 042
     Dates: start: 20051126

REACTIONS (2)
  - PLATELET COUNT DECREASED [None]
  - WHITE BLOOD CELL COUNT DECREASED [None]
